FAERS Safety Report 15340891 (Version 1)
Quarter: 2018Q3

REPORT INFORMATION
  Report Type: Spontaneous
  Country: US (occurrence: US)
  Receive Date: 20180831
  Receipt Date: 20180831
  Transmission Date: 20181010
  Serious: No
  Sender: FDA-Public Use
  Company Number: US-SA-2018SA242525

PATIENT
  Age: 46 Year
  Sex: Female

DRUGS (2)
  1. PRALUENT [Suspect]
     Active Substance: ALIROCUMAB
     Indication: HYPERCHOLESTEROLAEMIA
     Dosage: 150 MG, QOW
     Dates: start: 20180720
  2. ALIROCUMAB PREFILLED PEN [Suspect]
     Active Substance: ALIROCUMAB
     Indication: HYPERCHOLESTEROLAEMIA
     Dosage: 150 MG, QOW
     Dates: start: 20180720

REACTIONS (11)
  - Urticaria [Unknown]
  - Constipation [Unknown]
  - Sinus disorder [Unknown]
  - Pyrexia [Unknown]
  - Secretion discharge [Unknown]
  - Injection site rash [Unknown]
  - Influenza [Unknown]
  - Diarrhoea [Unknown]
  - Oropharyngeal pain [Unknown]
  - Drug dose omission [Unknown]
  - Muscle spasms [Unknown]
